FAERS Safety Report 8322158-4 (Version None)
Quarter: 2012Q2

REPORT INFORMATION
  Report Type: 
  Country: None (occurrence: None)
  Receive Date: 20120430
  Receipt Date: 20120418
  Transmission Date: 20120825
  Serious: Yes (Other)
  Sender: FDA-Public Use
  Company Number: GB-ROCHE-1061071

PATIENT
  Sex: Male

DRUGS (4)
  1. XELODA [Suspect]
     Indication: GASTRIC CANCER
     Dosage: DATE OF MOST RECENT DOSE-01/NOV/2011.
     Route: 048
     Dates: start: 20110920
  2. CISPLATIN [Suspect]
     Indication: GASTRIC CANCER
     Dosage: DATE OF MOST RECENT DOSE-01/NOV/2011.
     Route: 042
     Dates: start: 20110920
  3. EPIRUBICIN HYDROCHLORIDE [Suspect]
     Indication: GASTRIC CANCER
     Dosage: DATE OF MOST RECENT DOSE-01/NOV/2011.
     Route: 042
     Dates: start: 20110920
  4. AVASTIN [Suspect]
     Indication: GASTRIC CANCER
     Dosage: DATE OF MOST RECENT DOSE-01/NOV/2011.
     Route: 042
     Dates: start: 20110920

REACTIONS (1)
  - IMPAIRED HEALING [None]
